FAERS Safety Report 8139738-1 (Version None)
Quarter: 2012Q1

REPORT INFORMATION
  Report Type: 
  Country: None (occurrence: None)
  Receive Date: 20120215
  Receipt Date: 20120210
  Transmission Date: 20120608
  Serious: Yes (Disabling)
  Sender: FDA-Public Use
  Company Number: PHHY2012IN011851

PATIENT
  Sex: Male

DRUGS (4)
  1. AFINITOR [Suspect]
     Indication: METASTATIC RENAL CELL CARCINOMA
     Dosage: 10 MG, UNK
     Route: 048
     Dates: start: 20120110
  2. AFINITOR [Suspect]
     Dosage: UNK UKN, UNK
     Route: 048
  3. AFINITOR [Suspect]
     Dosage: UNK UKN, UNK
  4. AFINITOR [Suspect]
     Dosage: UNK UKN, UNK

REACTIONS (1)
  - SKIN HYPERPIGMENTATION [None]
